FAERS Safety Report 12332016 (Version 3)
Quarter: 2016Q2

REPORT INFORMATION
  Report Type: Spontaneous
  Country: US (occurrence: US)
  Receive Date: 20160504
  Receipt Date: 20160623
  Transmission Date: 20160815
  Serious: No
  Sender: FDA-Public Use
  Company Number: US-PFIZER INC-2016208881

PATIENT
  Age: 57 Year
  Sex: Male
  Weight: 88 kg

DRUGS (9)
  1. ADVIL [Suspect]
     Active Substance: IBUPROFEN
     Dosage: 2 DF, DAILY
  2. GLUCOSAMINE CHONDROITIN [Concomitant]
     Active Substance: CHONDROITIN SULFATE (BOVINE)\GLUCOSAMINE HYDROCHLORIDE
     Indication: INFLAMMATION
     Dosage: 1 DF, 1X/DAY
     Dates: start: 2016
  3. CARBAMAZEPINE. [Concomitant]
     Active Substance: CARBAMAZEPINE
     Indication: BIPOLAR DISORDER
     Dosage: 200 MG, 2X/DAY
  4. TRI SUGAR SHIELD [Suspect]
     Active Substance: DIETARY SUPPLEMENT
     Indication: BLOOD GLUCOSE ABNORMAL
     Dosage: UNKNOWN
  5. LITHIUM CARBONATE. [Concomitant]
     Active Substance: LITHIUM CARBONATE
     Indication: BIPOLAR DISORDER
     Dosage: 300 MG, 3X/DAY
  6. AMLODIPINE BESILATE [Concomitant]
     Active Substance: AMLODIPINE BESYLATE
     Indication: BLOOD PRESSURE ABNORMAL
     Dosage: 10 MG, 1X/DAY
  7. PRAVASTATIN SODIUM. [Concomitant]
     Active Substance: PRAVASTATIN SODIUM
     Indication: BLOOD CHOLESTEROL ABNORMAL
     Dosage: 80 MG, 1X/DAY
  8. ADVIL [Suspect]
     Active Substance: IBUPROFEN
     Indication: ARTHRALGIA
     Dosage: 1 DF, EVERY 4 HRS  4-5 DAILY
  9. DOXAZOSIN MESILATE [Concomitant]
     Active Substance: DOXAZOSIN MESYLATE
     Indication: HYPERTENSION
     Dosage: 1 MG, 1X/DAY

REACTIONS (2)
  - Blood glucose increased [Not Recovered/Not Resolved]
  - Intentional product misuse [Not Recovered/Not Resolved]
